FAERS Safety Report 4413772-7 (Version None)
Quarter: 2004Q3

REPORT INFORMATION
  Report Type: 
  Country: None (occurrence: None)
  Receive Date: 20040728
  Receipt Date: 20040716
  Transmission Date: 20050211
  Serious: Yes (Other)
  Sender: FDA-Public Use
  Company Number: ZONI001471

PATIENT
  Sex: Female

DRUGS (1)
  1. ZONEGRAN [Suspect]
     Indication: MIGRAINE
     Dates: start: 20040713

REACTIONS (2)
  - PHOTOPHOBIA [None]
  - VISION BLURRED [None]
